FAERS Safety Report 24710263 (Version 2)
Quarter: 2025Q1

REPORT INFORMATION
  Report Type: Spontaneous
  Country: US (occurrence: US)
  Receive Date: 20241209
  Receipt Date: 20250102
  Transmission Date: 20250409
  Serious: Yes (Hospitalization, Other)
  Sender: BRISTOL-MYERS SQUIBB COMPANY
  Company Number: US-BRISTOL-MYERS SQUIBB COMPANY-2024-187220

PATIENT
  Age: 64 Year
  Sex: Male

DRUGS (1)
  1. POMALYST [Suspect]
     Active Substance: POMALIDOMIDE
     Indication: Plasma cell myeloma
     Dosage: FREQUENCY: QD FOR 21 DAYS ON AND 7 DAYS OFF
     Route: 048

REACTIONS (5)
  - Gastroenteritis viral [Recovered/Resolved]
  - Immunodeficiency [Unknown]
  - Feeling abnormal [Recovered/Resolved]
  - Product distribution issue [Unknown]
  - Therapy interrupted [Unknown]
